FAERS Safety Report 9254815 (Version 1)
Quarter: 2013Q2

REPORT INFORMATION
  Report Type: Spontaneous
  Country: US (occurrence: None)
  Receive Date: 20130425
  Receipt Date: 20130425
  Transmission Date: 20140414
  Serious: Yes (Life-Threatening, Hospitalization)
  Sender: FDA-Public Use
  Company Number: None

PATIENT
  Age: 58 Year
  Sex: Female

DRUGS (1)
  1. WARFARIN SODIUM [Suspect]
     Indication: VENOUS INSUFFICIENCY
     Dosage: TAKE ONE TABLET AT BEDTIME, DAILY PO
     Route: 048
     Dates: start: 20130301, end: 20130401

REACTIONS (3)
  - International normalised ratio decreased [None]
  - Thrombosis [None]
  - Drug effect decreased [None]
